FAERS Safety Report 8274627-3 (Version None)
Quarter: 2012Q2

REPORT INFORMATION
  Report Type: 
  Country: None (occurrence: None)
  Receive Date: 20120411
  Receipt Date: 20120403
  Transmission Date: 20120825
  Serious: Yes (Other)
  Sender: FDA-Public Use
  Company Number: US-GLAXOSMITHKLINE-A0967658A

PATIENT
  Age: 62 Year
  Sex: Female

DRUGS (6)
  1. LOVASTATIN [Concomitant]
  2. AMBIEN [Concomitant]
  3. LOVAZA [Suspect]
     Indication: BLOOD TRIGLYCERIDES INCREASED
     Dosage: 1TAB SINGLE DOSE
     Route: 048
     Dates: start: 20120226, end: 20120226
  4. METFORMIN HCL [Concomitant]
  5. LORATADINE [Concomitant]
  6. LISINOPRIL [Concomitant]

REACTIONS (3)
  - DYSPHAGIA [None]
  - CHOKING [None]
  - VOMITING [None]
